FAERS Safety Report 15715399 (Version 35)
Quarter: 2020Q3

REPORT INFORMATION
  Report Type: Spontaneous
  Country: US (occurrence: US)
  Receive Date: 20181212
  Receipt Date: 20200811
  Transmission Date: 20201102
  Serious: Yes (Hospitalization, Other)
  Sender: FDA-Public Use
  Company Number: US-PFIZER INC-2018335128

PATIENT
  Age: 94 Year
  Sex: Female
  Weight: 55.79 kg

DRUGS (15)
  1. PHOSPHOLINE IODIDE [Suspect]
     Active Substance: ECHOTHIOPHATE IODIDE
     Indication: GLAUCOMA
     Dosage: 625 MG, 2X/DAY
     Route: 047
  2. PHOSPHOLINE IODIDE [Suspect]
     Active Substance: ECHOTHIOPHATE IODIDE
     Dosage: 1 GTT, 2X/DAY(0.125/1?8%, 625MG 1 DROP RIGHT EYE TWICE DAILY)
     Route: 047
  3. PHOSPHOLINE IODIDE [Suspect]
     Active Substance: ECHOTHIOPHATE IODIDE
     Dosage: 1 GTT, 2X/DAY [(0.125%; INSTILL ONE DROP IN RIGHT EYE TWICE A DAY)]
     Route: 047
  4. TRAVATAN [Concomitant]
     Active Substance: TRAVOPROST
     Indication: VISUAL IMPAIRMENT
     Dosage: 2 GTT, UNK (ONE DROP IN BOTH EYES)
  5. ALPHAGAN P [Concomitant]
     Active Substance: BRIMONIDINE TARTRATE
     Indication: GLAUCOMA
     Dosage: 1 GTT, 2X/DAY (ONE DROP IN RIGHT EYE TWICE A DAY)
  6. PHOSPHOLINE IODIDE [Suspect]
     Active Substance: ECHOTHIOPHATE IODIDE
     Dosage: UNK, 3X/DAY
     Route: 047
  7. PHOSPHOLINE IODIDE [Suspect]
     Active Substance: ECHOTHIOPHATE IODIDE
     Dosage: 3X/DAY [DROPS THREE TIMES A DAY]
     Route: 047
  8. PHOSPHOLINE IODIDE [Suspect]
     Active Substance: ECHOTHIOPHATE IODIDE
     Dosage: UNK, (6.25 MG/ 5 ML)
  9. BETOPIC [Concomitant]
     Indication: GLAUCOMA
     Dosage: UNK UNK, 2X/DAY(RIGHT EYE TWICE DAILY)
  10. PHOSPHOLINE IODIDE [Suspect]
     Active Substance: ECHOTHIOPHATE IODIDE
     Dosage: 1 GTT, 2X/DAY (ONE DROP IN THE RIGHT EYE TWO TIMES A DAY)
     Route: 047
  11. PANOPTIC [Concomitant]
     Indication: GLAUCOMA
     Dosage: 1 GTT, 2X/DAY (ONE DROP IN HER RIGHT EYE TWICE A DAY)
  12. PHOSPHOLINE IODIDE [Suspect]
     Active Substance: ECHOTHIOPHATE IODIDE
     Indication: INTRAOCULAR PRESSURE TEST ABNORMAL
     Dosage: 1 GTT, 2X/DAY
     Route: 047
  13. PHOSPHOLINE IODIDE [Suspect]
     Active Substance: ECHOTHIOPHATE IODIDE
     Dosage: 1 GTT, 2X/DAY (IN THE RIGHTY)
     Route: 047
  14. PHOSPHOLINE IODIDE [Suspect]
     Active Substance: ECHOTHIOPHATE IODIDE
     Dosage: 5 GTT, 3X/DAY
     Route: 047
  15. TRAVATAN [Concomitant]
     Active Substance: TRAVOPROST
     Indication: GLAUCOMA
     Dosage: UNK UNK, 1X/DAY (LEFT EYE ONCE DAILY)
     Route: 047

REACTIONS (19)
  - Dysarthria [Unknown]
  - Tremor [Unknown]
  - Peripheral swelling [Unknown]
  - Eye disorder [Unknown]
  - Illness [Unknown]
  - Memory impairment [Unknown]
  - Product dispensing error [Unknown]
  - Loss of consciousness [Unknown]
  - Movement disorder [Unknown]
  - Intentional product misuse [Unknown]
  - Heart rate abnormal [Recovered/Resolved]
  - Dyspnoea [Unknown]
  - Wrong technique in product usage process [Unknown]
  - Poor quality product administered [Unknown]
  - Pneumonia [Recovered/Resolved with Sequelae]
  - Blindness [Unknown]
  - Depression [Unknown]
  - Product quality issue [Unknown]
  - Pyrexia [Unknown]

NARRATIVE: CASE EVENT DATE: 2018
